FAERS Safety Report 25760872 (Version 2)
Quarter: 2025Q3

REPORT INFORMATION
  Report Type: Spontaneous
  Country: US (occurrence: US)
  Receive Date: 20250904
  Receipt Date: 20250924
  Transmission Date: 20251020
  Serious: No
  Sender: SANOFI AVENTIS
  Company Number: US-SA-2025SA263829

PATIENT
  Age: 77 Year
  Sex: Male

DRUGS (19)
  1. DUPIXENT [Suspect]
     Active Substance: DUPILUMAB
     Indication: Skin cancer
     Dosage: 300 MG, QOW
     Route: 058
     Dates: end: 2025
  2. AZELASTINE HYDROCHLORIDE [Concomitant]
     Active Substance: AZELASTINE HYDROCHLORIDE
  3. CALCIUM [Concomitant]
     Active Substance: CALCIUM
  4. CLONIDINE HYDROCHLORIDE [Concomitant]
     Active Substance: CLONIDINE HYDROCHLORIDE
  5. FLONASE ALLERGY RELIEF [Concomitant]
     Active Substance: FLUTICASONE PROPIONATE
  6. FLUTICASONE [Concomitant]
     Active Substance: FLUTICASONE
  7. MAGNESIUM [Concomitant]
     Active Substance: MAGNESIUM
  8. Multi complete [Concomitant]
  9. NEBIVOLOL [Concomitant]
     Active Substance: NEBIVOLOL
  10. OLMESARTAN MEDOXOMIL [Concomitant]
     Active Substance: OLMESARTAN MEDOXOMIL
  11. SODIUM BICARBONATE [Concomitant]
     Active Substance: SODIUM BICARBONATE
  12. SPIRIVA RESPIMAT [Concomitant]
     Active Substance: TIOTROPIUM BROMIDE
  13. SPIRONOLACTONE [Concomitant]
     Active Substance: SPIRONOLACTONE
  14. TAMSULOSIN HYDROCHLORIDE [Concomitant]
     Active Substance: TAMSULOSIN HYDROCHLORIDE
  15. HERBALS\TURMERIC [Concomitant]
     Active Substance: HERBALS\TURMERIC
  16. VITAMIN C [Concomitant]
     Active Substance: ASCORBIC ACID
  17. VITAMIN D3 [Concomitant]
     Active Substance: CHOLECALCIFEROL
  18. ZYRTEC [Concomitant]
     Active Substance: CETIRIZINE HYDROCHLORIDE
  19. HYDRALAZINE [Concomitant]
     Active Substance: HYDRALAZINE HYDROCHLORIDE

REACTIONS (7)
  - Erythema [Recovered/Resolved]
  - Condition aggravated [Recovered/Resolved]
  - Dermatitis [Unknown]
  - Rash pruritic [Unknown]
  - Rash [Recovered/Resolved]
  - Drug ineffective for unapproved indication [Unknown]
  - Product use in unapproved indication [Unknown]

NARRATIVE: CASE EVENT DATE: 20250901
